FAERS Safety Report 8795025 (Version 1)
Quarter: 2012Q4

REPORT INFORMATION
  Report Type: 
  Country: US (occurrence: US)
  Receive Date: 20120917
  Receipt Date: 20120917
  Transmission Date: 20130627
  Serious: No
  Sender: FDA-Public Use
  Company Number: US-ASTRAZENECA-2012SE65552

PATIENT
  Age: 61 Year
  Sex: Male

DRUGS (2)
  1. ACCOLATE [Suspect]
     Route: 048
  2. NEXIUM [Concomitant]

REACTIONS (2)
  - Wheezing [Unknown]
  - Drug ineffective [Unknown]
